FAERS Safety Report 6409584-5 (Version None)
Quarter: 2009Q4

REPORT INFORMATION
  Report Type: 
  Country: None (occurrence: None)
  Receive Date: 20091020
  Receipt Date: 20091020
  Transmission Date: 20100525
  Serious: Yes (Other)
  Sender: FDA-Public Use
  Company Number: None

PATIENT
  Sex: Male
  Weight: 83.9154 kg

DRUGS (1)
  1. DIAZEPAM [Suspect]
     Indication: SPINAL CORD INJURY
     Dosage: 5 MG QID 047
     Dates: start: 19800101, end: 20090401

REACTIONS (1)
  - SKIN DISCOLOURATION [None]
